FAERS Safety Report 14156260 (Version 5)
Quarter: 2018Q1

REPORT INFORMATION
  Report Type: Spontaneous
  Country: BG (occurrence: BG)
  Receive Date: 20171103
  Receipt Date: 20180228
  Transmission Date: 20180508
  Serious: Yes (Other)
  Sender: FDA-Public Use
  Company Number: BG-AMGEN-BGRSP2017163054

PATIENT
  Age: 52 Year
  Sex: Male
  Weight: 95 kg

DRUGS (9)
  1. XGEVA [Suspect]
     Active Substance: DENOSUMAB
     Dosage: UNK
     Route: 058
     Dates: start: 20170725
  2. ABIRATERONE [Concomitant]
     Active Substance: ABIRATERONE
     Dosage: UNK
     Dates: start: 201508
  3. DOCETAXEL. [Concomitant]
     Active Substance: DOCETAXEL
     Indication: PROSTATE CANCER
     Dosage: 75 MG/M2, Q3WK
     Dates: start: 20160802, end: 20161004
  4. XGEVA [Suspect]
     Active Substance: DENOSUMAB
     Indication: PROSTATE CANCER
     Dosage: 120 MG, Q4WK
     Route: 058
     Dates: start: 20140515, end: 20170302
  5. XGEVA [Suspect]
     Active Substance: DENOSUMAB
     Dosage: UNK
     Route: 058
     Dates: start: 20170914
  6. METASTRON [Concomitant]
     Active Substance: STRONTIUM CHLORIDE SR-89
     Dosage: UNK
     Dates: start: 201601
  7. XTANDI [Concomitant]
     Active Substance: ENZALUTAMIDE
     Indication: HORMONE-REFRACTORY PROSTATE CANCER
     Dosage: 160 MG, QD
     Dates: start: 20161101
  8. METASTRON [Concomitant]
     Active Substance: STRONTIUM CHLORIDE SR-89
     Dosage: UNK
     Dates: start: 201710
  9. DEXAMETHASONE. [Concomitant]
     Active Substance: DEXAMETHASONE
     Dosage: 24 MG, Q3WK
     Route: 065
     Dates: start: 20160802, end: 20171004

REACTIONS (3)
  - Osteonecrosis of jaw [Not Recovered/Not Resolved]
  - Dental restoration failure [Unknown]
  - Type 2 diabetes mellitus [Unknown]

NARRATIVE: CASE EVENT DATE: 20170510
